FAERS Safety Report 12393196 (Version 1)
Quarter: 2016Q2

REPORT INFORMATION
  Report Type: Spontaneous
  Country: US (occurrence: None)
  Receive Date: 20160520
  Receipt Date: 20160520
  Transmission Date: 20160815
  Serious: Yes (Other)
  Sender: FDA-Public Use
  Company Number: None

PATIENT
  Age: 62 Year
  Sex: Female
  Weight: 90.27 kg

DRUGS (24)
  1. MECLIZINE [Concomitant]
     Active Substance: MECLIZINE HYDROCHLORIDE
  2. CHEWABLE B COMPLEX [Concomitant]
  3. NITROFURANTOIN MCR 100MG CAP SUBST FOR MACRODANTIN OBLONG YELLOW MACRODANTIN [Suspect]
     Active Substance: NITROFURANTOIN
     Indication: URINARY TRACT INFECTION
     Route: 048
     Dates: start: 20160429, end: 20160430
  4. COREG [Concomitant]
     Active Substance: CARVEDILOL
  5. PRADAXA [Concomitant]
     Active Substance: DABIGATRAN ETEXILATE MESYLATE
  6. SIMVASTATIN. [Concomitant]
     Active Substance: SIMVASTATIN
  7. VAGIFEM [Concomitant]
     Active Substance: ESTRADIOL
  8. COQ10 [Concomitant]
     Active Substance: UBIDECARENONE
  9. LISINOPRIL. [Concomitant]
     Active Substance: LISINOPRIL
  10. MULTI VITAMIN [Concomitant]
     Active Substance: VITAMINS
  11. VITAMIN D3 [Concomitant]
     Active Substance: CHOLECALCIFEROL
  12. C-PAP MACHINE [Concomitant]
     Active Substance: DEVICE
  13. HCTZ [Concomitant]
     Active Substance: HYDROCHLOROTHIAZIDE
  14. FENOFIBRATE. [Concomitant]
     Active Substance: FENOFIBRATE
  15. POTASSIUM [Concomitant]
     Active Substance: POTASSIUM
  16. CLONODINE [Concomitant]
  17. LUTEIN [Concomitant]
     Active Substance: LUTEIN
  18. MAGNESIUM [Concomitant]
     Active Substance: MAGNESIUM
  19. NOVOLOG [Concomitant]
     Active Substance: INSULIN ASPART
  20. ZINC [Concomitant]
     Active Substance: ZINC\ZINC CHLORIDE
  21. METFORMIN [Concomitant]
     Active Substance: METFORMIN HYDROCHLORIDE
  22. GLIPIZIDE. [Concomitant]
     Active Substance: GLIPIZIDE
  23. LEVOTHYROXINE. [Concomitant]
     Active Substance: LEVOTHYROXINE
  24. FISH OIL [Concomitant]
     Active Substance: FISH OIL

REACTIONS (7)
  - Pruritus [None]
  - Dyspnoea [None]
  - Pain [None]
  - Rash [None]
  - Chills [None]
  - Shock symptom [None]
  - Asthenia [None]

NARRATIVE: CASE EVENT DATE: 20160501
